FAERS Safety Report 6259615-0 (Version None)
Quarter: 2009Q3

REPORT INFORMATION
  Report Type: 
  Country: None (occurrence: None)
  Receive Date: 20090708
  Receipt Date: 20090630
  Transmission Date: 20100115
  Serious: Yes (Death)
  Sender: FDA-Public Use
  Company Number: US-JNJFOC-20080903723

PATIENT
  Sex: Male
  Weight: 110.68 kg

DRUGS (14)
  1. FENTANYL TRANSDERMAL SYSTEM [Suspect]
     Indication: PROCEDURAL PAIN
     Route: 062
  2. VALIUM [Suspect]
     Indication: ANXIETY
     Route: 048
  3. DIAZEPAM [Concomitant]
     Indication: PAIN
     Route: 042
  4. PERCOCET [Concomitant]
     Indication: PAIN
     Route: 048
  5. METOPROLOL TARTRATE [Concomitant]
  6. DILAUDID [Concomitant]
     Indication: PROCEDURAL PAIN
     Route: 042
  7. ENOXAPARIN SODIUM [Concomitant]
  8. AMBIEN [Concomitant]
  9. ACETAMOPHEN [Concomitant]
  10. MAALOX [Concomitant]
     Route: 048
  11. NORCO [Concomitant]
     Indication: PAIN
     Route: 048
  12. VICODIN [Concomitant]
     Indication: PAIN
     Route: 048
  13. ZANAFLEX [Concomitant]
     Route: 048
  14. OXYCODONE [Concomitant]
     Indication: BACK PAIN

REACTIONS (2)
  - DRUG TOXICITY [None]
  - OFF LABEL USE [None]
